FAERS Safety Report 21932281 (Version 4)
Quarter: 2023Q1

REPORT INFORMATION
  Report Type: Spontaneous
  Country: US (occurrence: US)
  Receive Date: 20230131
  Receipt Date: 20230217
  Transmission Date: 20230418
  Serious: Yes (Death, Other)
  Sender: FDA-Public Use
  Company Number: US-SEATTLE GENETICS-2023SGN01099

PATIENT
  Age: 70 Year
  Sex: Female

DRUGS (1)
  1. TIVDAK [Suspect]
     Active Substance: TISOTUMAB VEDOTIN-TFTV
     Indication: Cervix carcinoma
     Dosage: 141.2 MG, Q21D
     Route: 042
     Dates: start: 20220414, end: 20220519

REACTIONS (1)
  - Death [Fatal]

NARRATIVE: CASE EVENT DATE: 20220820
